FAERS Safety Report 6848232-7 (Version None)
Quarter: 2010Q3

REPORT INFORMATION
  Report Type: 
  Country: None (occurrence: None)
  Receive Date: 20100716
  Receipt Date: 20100706
  Transmission Date: 20110219
  Serious: Yes (Other)
  Sender: FDA-Public Use
  Company Number: US-PFIZER INC-2010073740

PATIENT
  Sex: Female
  Weight: 80.272 kg

DRUGS (3)
  1. TOVIAZ [Suspect]
     Indication: HYPERTONIC BLADDER
     Dosage: 4 MG, DAILY
     Route: 048
     Dates: start: 20100525, end: 20100610
  2. QUINAPRIL [Concomitant]
     Indication: HYPERTENSION
     Dosage: UNK
  3. DILTIAZEM [Concomitant]
     Indication: HYPERTENSION
     Dosage: UNK

REACTIONS (3)
  - DIZZINESS [None]
  - DRY MOUTH [None]
  - LOSS OF CONSCIOUSNESS [None]
